FAERS Safety Report 5097477-8 (Version None)
Quarter: 2006Q3

REPORT INFORMATION
  Report Type: 
  Country: None (occurrence: None)
  Receive Date: 20060901
  Receipt Date: 20060817
  Transmission Date: 20061208
  Serious: Yes (Hospitalization)
  Sender: FDA-Public Use
  Company Number: US200607004132

PATIENT
  Age: 52 Year
  Sex: Male

DRUGS (2)
  1. CIALIS [Suspect]
     Indication: ERECTILE DYSFUNCTION
     Dosage: 20 MG
  2. ANTIHYPERTENSIVES [Concomitant]

REACTIONS (2)
  - COLITIS ISCHAEMIC [None]
  - PYREXIA [None]
